FAERS Safety Report 18610892 (Version 1)
Quarter: 2020Q4

REPORT INFORMATION
  Report Type: Spontaneous
  Country: US (occurrence: US)
  Receive Date: 20201212
  Receipt Date: 20201212
  Transmission Date: 20210114
  Serious: No
  Sender: FDA-Public Use
  Company Number: None

PATIENT
  Age: 24 Year
  Weight: 76.5 kg

DRUGS (2)
  1. TESTOSTERONE. [Concomitant]
     Active Substance: TESTOSTERONE
  2. SUMATRIPTAN. [Suspect]
     Active Substance: SUMATRIPTAN
     Indication: MIGRAINE
     Dosage: ?          QUANTITY:1 TABLET(S);OTHER FREQUENCY:ON ONSET MIGRAINE;?
     Route: 048

REACTIONS (4)
  - Dysphagia [None]
  - Paraesthesia [None]
  - Confusional state [None]
  - Somnolence [None]

NARRATIVE: CASE EVENT DATE: 20201212
